FAERS Safety Report 7953671-7 (Version None)
Quarter: 2011Q4

REPORT INFORMATION
  Report Type: 
  Country: None (occurrence: None)
  Receive Date: 20111202
  Receipt Date: 20111122
  Transmission Date: 20120403
  Serious: No
  Sender: FDA-Public Use
  Company Number: US-B.I. PHARMACEUTICALS,INC./RIDGEFIELD-2011-BP-26708BP

PATIENT
  Sex: Male

DRUGS (9)
  1. PROZAC [Concomitant]
     Indication: DEPRESSION
     Dosage: 20 MG
     Route: 048
  2. LEVOTHYROXINE SODIUM [Concomitant]
     Indication: HYPOTHYROIDISM
     Route: 048
  3. PAXIL [Concomitant]
     Indication: PANIC ATTACK
     Route: 048
     Dates: start: 20110501
  4. XANAX [Concomitant]
     Indication: PANIC ATTACK
     Route: 048
  5. LOVAZA [Concomitant]
     Indication: SUPPLEMENTATION THERAPY
     Route: 048
  6. PRADAXA [Suspect]
     Indication: ATRIAL FIBRILLATION
     Dosage: 300 MG
     Route: 048
     Dates: start: 20111112
  7. LODIPINE [Concomitant]
     Indication: HYPERTENSION
     Dosage: 2.5 MG
     Route: 048
  8. ZETIA [Concomitant]
     Indication: BLOOD CHOLESTEROL INCREASED
     Route: 048
  9. PAXIL [Concomitant]
     Indication: ANXIETY

REACTIONS (2)
  - BLEEDING TIME SHORTENED [None]
  - INJURY [None]
